FAERS Safety Report 5159445-7 (Version None)
Quarter: 2006Q4

REPORT INFORMATION
  Report Type: 
  Country: None (occurrence: None)
  Receive Date: 20061102
  Receipt Date: 20061102
  Transmission Date: 20070319
  Serious: Yes (Hospitalization)
  Sender: FDA-Public Use
  Company Number: None

PATIENT
  Sex: Female
  Weight: 38.1022 kg

DRUGS (9)
  1. MEGACE [Suspect]
     Indication: CHEMOTHERAPY
     Dosage: 400 MG BID
     Dates: start: 20061012
  2. MEGACE [Suspect]
     Indication: WEIGHT DECREASED
     Dosage: 400 MG BID
     Dates: start: 20061012
  3. SLOW FE [Concomitant]
  4. OXYCODONE HCL [Concomitant]
  5. OXYCODONE-ACETAMINOPHEN [Concomitant]
  6. NAPROXEN [Concomitant]
  7. POTASSIUM CHLORIDE [Concomitant]
  8. FOLFOX (5FU, ELOXATIN, LEUCOVORIN) [Concomitant]
  9. AVASTIN [Concomitant]

REACTIONS (2)
  - ANAEMIA [None]
  - FATIGUE [None]
